FAERS Safety Report 24870389 (Version 1)
Quarter: 2025Q1

REPORT INFORMATION
  Report Type: Spontaneous
  Country: US (occurrence: US)
  Receive Date: 20250121
  Receipt Date: 20250121
  Transmission Date: 20250408
  Serious: Yes (Hospitalization)
  Sender: SANOFI AVENTIS
  Company Number: US-SA-2025SA018194

PATIENT
  Age: 15 Year
  Sex: Female
  Weight: 60 kg

DRUGS (1)
  1. THYMOGLOBULIN [Suspect]
     Active Substance: LAPINE T-LYMPHOCYTE IMMUNE GLOBULIN
     Indication: Prophylaxis against transplant rejection
     Dosage: 95 MG 1 DOSE EVERY 1 DAY[ 95 MG, 100 MG Q24H X 3 DOSES, 50 MG, 100 MG]
     Route: 042
     Dates: start: 20241226, end: 20241231

REACTIONS (5)
  - Serum sickness [Recovering/Resolving]
  - Neck pain [Unknown]
  - Arthralgia [Unknown]
  - Pain [Unknown]
  - Gait inability [Unknown]

NARRATIVE: CASE EVENT DATE: 20250108
